FAERS Safety Report 10641698 (Version 1)
Quarter: 2014Q4

REPORT INFORMATION
  Report Type: Spontaneous
  Country: US (occurrence: US)
  Receive Date: 20141209
  Receipt Date: 20141209
  Transmission Date: 20150529
  Serious: Yes (Hospitalization, Other)
  Sender: FDA-Public Use
  Company Number: US-PFIZER INC-2014336971

PATIENT
  Sex: Female

DRUGS (1)
  1. EFFEXOR XR [Suspect]
     Active Substance: VENLAFAXINE HYDROCHLORIDE
     Dosage: UNK

REACTIONS (10)
  - Road traffic accident [Unknown]
  - Seizure [Unknown]
  - Speech disorder [Unknown]
  - Somnambulism [Unknown]
  - Syncope [Unknown]
  - Tinnitus [Unknown]
  - Rib fracture [Unknown]
  - Tooth loss [Unknown]
  - Sjogren^s syndrome [Unknown]
  - Abnormal dreams [Unknown]
